FAERS Safety Report 9452724 (Version 2)
Quarter: 2013Q3

REPORT INFORMATION
  Report Type: Spontaneous
  Country: JP (occurrence: JP)
  Receive Date: 20130812
  Receipt Date: 20130826
  Transmission Date: 20140515
  Serious: Yes (Life-Threatening, Other)
  Sender: FDA-Public Use
  Company Number: PHHY2010JP25730

PATIENT
  Age: 35 Year
  Sex: Female

DRUGS (25)
  1. NEORAL [Suspect]
     Indication: LUNG TRANSPLANT
     Dosage: 400 MG, UNK
     Route: 048
     Dates: start: 20010129, end: 20010402
  2. NEORAL [Suspect]
     Dosage: 250 MG, UNK
     Route: 048
     Dates: start: 20010410
  3. SANDIMMUN [Suspect]
     Indication: LUNG TRANSPLANT
     Dosage: 96 MG, UNK
     Route: 042
     Dates: start: 20010121, end: 20010129
  4. SANDIMMUN [Suspect]
     Dosage: 72 MG, UNK
     Route: 042
     Dates: start: 20010403, end: 20010410
  5. CELLCEPT [Suspect]
     Indication: LUNG TRANSPLANT
     Dosage: 1000 MG, UNK
     Route: 048
     Dates: start: 20010122, end: 20011004
  6. CELLCEPT [Suspect]
     Dosage: 1500 MG, UNK
     Route: 048
     Dates: start: 20010122, end: 20011004
  7. CELLCEPT [Suspect]
     Dosage: 1000 MG, UNK
     Route: 048
     Dates: start: 20010122, end: 20011004
  8. CELLCEPT [Suspect]
  9. DENOSINE [Suspect]
     Dosage: 200 MG, UNK
     Route: 042
     Dates: end: 20010906
  10. DENOSINE [Suspect]
     Dosage: 100 MG, UNK
     Route: 042
     Dates: start: 20010907, end: 20010915
  11. DENOSINE [Suspect]
     Dosage: 200 MG, UNK
     Route: 042
     Dates: start: 20011005, end: 20011010
  12. DENOSINE [Suspect]
     Dosage: 100 MG, UNK
     Route: 042
     Dates: start: 20011011, end: 20011011
  13. DENOSINE [Suspect]
     Dosage: 50 MG, UNK
     Route: 042
     Dates: start: 20011012, end: 20011023
  14. DENOSINE [Suspect]
     Dosage: 100 MG, UNK
     Route: 042
     Dates: start: 20011024, end: 20011116
  15. DENOSINE [Suspect]
     Dosage: 150 MG, UNK
     Route: 042
     Dates: start: 20011117, end: 20011216
  16. DENOSINE [Suspect]
     Dosage: 200 MG, UNK
     Route: 042
     Dates: start: 20011217, end: 20011222
  17. DENOSINE [Suspect]
     Dosage: 150 MG, UNK
     Route: 042
     Dates: start: 20011223, end: 20020107
  18. DENOSINE [Suspect]
     Dosage: 100 MG, UNK
     Route: 042
     Dates: start: 20020108, end: 20020111
  19. ADRENAL CORTICAL EXTRACT [Concomitant]
     Indication: LUNG TRANSPLANT
     Dosage: 500 MG, UNK
     Route: 042
     Dates: start: 20010121, end: 20010410
  20. ADRENAL CORTICAL EXTRACT [Concomitant]
     Dosage: 25 MG, UNK
     Route: 042
  21. ADRENAL CORTICAL EXTRACT [Concomitant]
     Indication: LUNG TRANSPLANT
     Dosage: 22.5 MG, UNK
     Route: 048
     Dates: start: 20010130
  22. ADRENAL CORTICAL EXTRACT [Concomitant]
     Dosage: 20 MG, UNK
     Route: 048
     Dates: start: 20010130
  23. IMURAN [Concomitant]
     Indication: LUNG TRANSPLANT
     Dosage: 50 MG, UNK
     Route: 048
     Dates: start: 20010402
  24. IMURAN [Concomitant]
     Dosage: 75 MG, UNK
     Route: 048
     Dates: start: 20010402
  25. BASILIXIMAB [Concomitant]

REACTIONS (12)
  - Bronchostenosis [Recovered/Resolved with Sequelae]
  - Device related infection [Unknown]
  - Pseudomonas infection [Unknown]
  - Cytomegalovirus infection [Unknown]
  - Renal impairment [Recovered/Resolved]
  - Bone marrow failure [Unknown]
  - Lung transplant rejection [Unknown]
  - Anastomotic stenosis [Unknown]
  - Pancytopenia [Unknown]
  - Anaemia [Unknown]
  - Drug level fluctuating [Unknown]
  - Decreased appetite [Unknown]
